FAERS Safety Report 9522223 (Version 1)
Quarter: 2013Q3

REPORT INFORMATION
  Report Type: Spontaneous
  Country: US (occurrence: None)
  Receive Date: 20130829
  Receipt Date: 20130829
  Transmission Date: 20140515
  Serious: Yes (Hospitalization)
  Sender: FDA-Public Use
  Company Number: 2013PROUSA03085

PATIENT
  Age: 83 Year
  Sex: Male

DRUGS (1)
  1. PROVENGE (SIPULEUCEL-T) SUSPENSION, 250ML [Suspect]
     Indication: PROSTATE CANCER METASTATIC
     Route: 042
     Dates: start: 20130812, end: 20130812

REACTIONS (5)
  - Cardiac failure congestive [None]
  - Dysuria [None]
  - Anuria [None]
  - Pelvic pain [None]
  - Pyrexia [None]
